APPROVED DRUG PRODUCT: DESLORATADINE
Active Ingredient: DESLORATADINE
Strength: 5MG
Dosage Form/Route: TABLET;ORAL
Application: A078357 | Product #001 | TE Code: AB
Applicant: ORBION PHARMACEUTICALS PRIVATE LTD
Approved: Feb 19, 2010 | RLD: No | RS: No | Type: RX